FAERS Safety Report 23824811 (Version 3)
Quarter: 2024Q2

REPORT INFORMATION
  Report Type: Spontaneous
  Country: JP (occurrence: JP)
  Receive Date: 20240507
  Receipt Date: 20240603
  Transmission Date: 20240716
  Serious: Yes (Other)
  Sender: FDA-Public Use
  Company Number: JP-CHEPLA-2024005610

PATIENT
  Age: 6 Decade
  Sex: Male

DRUGS (1)
  1. CAPECITABINE [Suspect]
     Active Substance: CAPECITABINE
     Indication: Colon cancer
     Dosage: BID, STRENGTH: 300?DAILY DOSE: 3000 MILLIGRAM

REACTIONS (5)
  - Carcinoembryonic antigen increased [Recovering/Resolving]
  - Metastases to nervous system [Unknown]
  - Hypoaesthesia [Not Recovered/Not Resolved]
  - Pain in extremity [Not Recovered/Not Resolved]
  - Lumbosacral plexopathy [Unknown]
